FAERS Safety Report 7690501-5 (Version None)
Quarter: 2011Q3

REPORT INFORMATION
  Report Type: 
  Country: None (occurrence: None)
  Receive Date: 20110818
  Receipt Date: 20110815
  Transmission Date: 20111222
  Serious: Yes (Death)
  Sender: FDA-Public Use
  Company Number: US-PFIZER INC-2011188447

PATIENT
  Sex: Male

DRUGS (5)
  1. SUTENT [Suspect]
     Dosage: 50 MG, 1X/DAY
     Route: 048
  2. SELZENTRY [Concomitant]
     Dosage: 300 MG, UNK
  3. ENTECAVIR [Concomitant]
     Dosage: 1 MG, UNK
  4. ISENTRESS [Concomitant]
     Dosage: 400 MG, UNK
  5. ETRAVIRINE [Concomitant]
     Dosage: 100 MG, UNK

REACTIONS (1)
  - DEATH [None]
